FAERS Safety Report 16215335 (Version 1)
Quarter: 2019Q2

REPORT INFORMATION
  Report Type: Spontaneous
  Country: US (occurrence: US)
  Receive Date: 20190419
  Receipt Date: 20190419
  Transmission Date: 20190711
  Serious: No
  Sender: FDA-Public Use
  Company Number: US-TEVA-2019-US-1039692

PATIENT
  Sex: Female

DRUGS (1)
  1. NYSTATIN AND TRIAMCINOLONE ACETONIDE OINTMENT [Suspect]
     Active Substance: NYSTATIN\TRIAMCINOLONE ACETONIDE
     Indication: VULVOVAGINAL PRURITUS

REACTIONS (3)
  - Product prescribing error [Unknown]
  - Skin discolouration [Not Recovered/Not Resolved]
  - Product use in unapproved indication [Unknown]
